FAERS Safety Report 11839531 (Version 3)
Quarter: 2016Q2

REPORT INFORMATION
  Report Type: Report from Study
  Country: BR (occurrence: BR)
  Receive Date: 20151216
  Receipt Date: 20160404
  Transmission Date: 20160815
  Serious: Yes (Hospitalization, Other)
  Sender: FDA-Public Use
  Company Number: BR-ROCHE-1283760

PATIENT
  Sex: Female
  Weight: 68 kg

DRUGS (6)
  1. ACTEMRA [Suspect]
     Active Substance: TOCILIZUMAB
     Indication: RHEUMATOID ARTHRITIS
     Dosage: LAST INFUSION OF TOCILIZUMAB WAS ON 14/OCT/2015.
     Route: 042
     Dates: start: 20100504
  2. TYLEX (BRAZIL) [Suspect]
     Active Substance: ACETAMINOPHEN\CODEINE PHOSPHATE
     Indication: PRODUCT USED FOR UNKNOWN INDICATION
     Route: 065
  3. METICORTEN [Concomitant]
     Active Substance: PREDNISONE
     Dosage: HALF TABLET IN THE MORNING AND HALF TABLET IN THE EVENING
     Route: 065
  4. METICORTEN [Concomitant]
     Active Substance: PREDNISONE
     Route: 048
  5. SOMALGIN [Concomitant]
     Active Substance: ASPIRIN\DIHYDROXYALUMINUM AMINOACETATE ANHYDROUS\MAGNESIUM CARBONATE
  6. CRESTOR [Concomitant]
     Active Substance: ROSUVASTATIN CALCIUM
     Route: 048

REACTIONS (12)
  - Tendon rupture [Unknown]
  - Breast neoplasm [Unknown]
  - Antiphospholipid syndrome [Unknown]
  - Tendon disorder [Unknown]
  - Joint effusion [Unknown]
  - Blood cholesterol increased [Unknown]
  - Ill-defined disorder [Unknown]
  - Arthralgia [Unknown]
  - Weight increased [Unknown]
  - Gastrointestinal disorder [Unknown]
  - Joint stiffness [Unknown]
  - Constipation [Unknown]

NARRATIVE: CASE EVENT DATE: 2014
